FAERS Safety Report 10544804 (Version 4)
Quarter: 2014Q4

REPORT INFORMATION
  Report Type: Spontaneous
  Country: JP (occurrence: JP)
  Receive Date: 20141027
  Receipt Date: 20141114
  Transmission Date: 20150529
  Serious: Yes (Hospitalization, Other)
  Sender: FDA-Public Use
  Company Number: JP-BRISTOL-MYERS SQUIBB COMPANY-21518931

PATIENT
  Age: 78 Year
  Sex: Male

DRUGS (7)
  1. CILOSTAZOL. [Concomitant]
     Active Substance: CILOSTAZOL
     Route: 065
  2. FORXIGA [Suspect]
     Active Substance: DAPAGLIFLOZIN
     Indication: TYPE 2 DIABETES MELLITUS
     Dosage: DOSE UNKNOWN?TABLET
     Route: 048
     Dates: start: 20140531, end: 20140927
  3. KETAS [Suspect]
     Active Substance: IBUDILAST
     Dosage: DOSE UNKNOWN
     Route: 065
  4. TENELIA [Suspect]
     Active Substance: CITALOPRAM HYDROBROMIDE
     Dosage: DOSE UNKNOWN
     Route: 065
  5. ADALAT CC [Suspect]
     Active Substance: NIFEDIPINE
     Dosage: DOSE UNKNOWN
     Route: 065
  6. METGLUCO [Suspect]
     Active Substance: METFORMIN HYDROCHLORIDE
     Dosage: DOSE UNKNOWN
     Route: 065
  7. DOXAZOSIN [Suspect]
     Active Substance: DOXAZOSIN\DOXAZOSIN MESYLATE
     Dosage: DOSE UNKNOWN
     Route: 065

REACTIONS (2)
  - Carotid artery stenosis [Unknown]
  - Transient ischaemic attack [Recovered/Resolved]

NARRATIVE: CASE EVENT DATE: 201408
